FAERS Safety Report 19450077 (Version 3)
Quarter: 2022Q3

REPORT INFORMATION
  Report Type: Spontaneous
  Country: CH (occurrence: CH)
  Receive Date: 20210622
  Receipt Date: 20220701
  Transmission Date: 20221027
  Serious: Yes (Other)
  Sender: FDA-Public Use
  Company Number: None

PATIENT
  Age: 47 Year
  Sex: Male

DRUGS (2)
  1. COMIRNATY [Suspect]
     Active Substance: TOZINAMERAN
     Indication: COVID-19 immunisation
     Dosage: DOSE NUMBER UNKNOWN, SINGLE
     Route: 030
     Dates: start: 20210428, end: 20210428
  2. FELDENE [Suspect]
     Active Substance: PIROXICAM
     Indication: Arthralgia
     Dosage: UNK
     Dates: start: 20210503

REACTIONS (7)
  - Vertigo [Unknown]
  - Dizziness [Recovered/Resolved]
  - Deafness bilateral [Recovered/Resolved]
  - Hypotonia [Recovered/Resolved]
  - Tinnitus [Unknown]
  - Balance disorder [Unknown]
  - Ear discomfort [Recovering/Resolving]

NARRATIVE: CASE EVENT DATE: 20210401
